FAERS Safety Report 13631104 (Version 1)
Quarter: 2017Q2

REPORT INFORMATION
  Report Type: Spontaneous
  Country: US (occurrence: US)
  Receive Date: 20170531
  Receipt Date: 20170531
  Transmission Date: 20170830
  Serious: No
  Sender: FDA-Public Use
  Company Number: US-ASTELLAS-1351407

PATIENT
  Sex: Male

DRUGS (2)
  1. TARCEVA [Suspect]
     Active Substance: ERLOTINIB HYDROCHLORIDE
     Indication: PENILE CANCER
     Route: 048
     Dates: start: 20140210, end: 20140213
  2. IBUPROFEN. [Concomitant]
     Active Substance: IBUPROFEN

REACTIONS (6)
  - Abdominal distension [Unknown]
  - Dyschezia [Unknown]
  - Haemorrhoids [Not Recovered/Not Resolved]
  - Proctalgia [Not Recovered/Not Resolved]
  - Dermatitis acneiform [Not Recovered/Not Resolved]
  - Haematochezia [Not Recovered/Not Resolved]
